FAERS Safety Report 6721847-2 (Version None)
Quarter: 2010Q2

REPORT INFORMATION
  Report Type: 
  Country: None (occurrence: None)
  Receive Date: 20100512
  Receipt Date: 20100428
  Transmission Date: 20101027
  Serious: Yes (Other)
  Sender: FDA-Public Use
  Company Number: PHEH2008US04165

PATIENT
  Sex: Female

DRUGS (20)
  1. AREDIA [Suspect]
     Dosage: 90 MG, EVERY 4 WEEKS
     Route: 042
     Dates: end: 20091001
  2. AREDIA [Suspect]
     Dosage: 90 MG, EVERY 8 WEEKS
     Dates: start: 20091001
  3. ZOMETA [Suspect]
     Dosage: 4 MG, UNK
     Route: 042
  4. TYLENOL-500 [Concomitant]
     Dosage: 650 MG, UNK
  5. RADIATION [Concomitant]
  6. TAMOXIFEN CITRATE [Concomitant]
     Dosage: UNK
     Dates: start: 20021201
  7. DEXAMETHASONE [Concomitant]
  8. METFORMIN HYDROCHLORIDE [Concomitant]
  9. OXYCODONE [Concomitant]
  10. LEVAQUIN [Concomitant]
  11. OXYCONTIN [Concomitant]
  12. RADIATION THERAPY [Concomitant]
  13. ZITHROMAX [Concomitant]
  14. FOSAMAX [Concomitant]
  15. KEFLEX [Concomitant]
  16. XELODA [Concomitant]
     Dosage: UNK
  17. HERCEPTIN [Concomitant]
     Dosage: UNK
  18. AROMASIN [Concomitant]
     Dosage: UNK
     Dates: start: 20090201, end: 20090601
  19. FASLODEX [Concomitant]
     Dosage: UNK
     Dates: start: 20081001, end: 20090201
  20. ARIMIDEX [Concomitant]
     Dosage: UNK
     Dates: start: 20041101, end: 20080901

REACTIONS (65)
  - ABDOMINAL HERNIA [None]
  - ACTIVITIES OF DAILY LIVING IMPAIRED [None]
  - ANGER [None]
  - ANHEDONIA [None]
  - ANXIETY [None]
  - ARTHRALGIA [None]
  - BACK PAIN [None]
  - BONE LESION [None]
  - BREAST CANCER METASTATIC [None]
  - CENTRAL VENOUS CATHETERISATION [None]
  - CERVICAL POLYP [None]
  - COSTOCHONDRITIS [None]
  - DECUBITUS ULCER [None]
  - DEPRESSION [None]
  - DERMATITIS CONTACT [None]
  - DISABILITY [None]
  - DIZZINESS [None]
  - DYSARTHRIA [None]
  - DYSURIA [None]
  - ENDOMETRIOSIS [None]
  - ERYTHEMA [None]
  - FEELING ABNORMAL [None]
  - FIBROSIS [None]
  - GAIT DISTURBANCE [None]
  - HAEMORRHOIDS [None]
  - HEADACHE [None]
  - HEPATIC MASS [None]
  - HEPATIC STEATOSIS [None]
  - HYPERCHOLESTEROLAEMIA [None]
  - HYPERLIPIDAEMIA [None]
  - HYPOAESTHESIA [None]
  - HYSTERECTOMY [None]
  - INJURY [None]
  - INSOMNIA [None]
  - INTERVERTEBRAL DISC DEGENERATION [None]
  - INTERVERTEBRAL DISC PROTRUSION [None]
  - MEMORY IMPAIRMENT [None]
  - METASTASES TO BONE [None]
  - METASTASES TO SPINE [None]
  - MIGRAINE [None]
  - MOBILITY DECREASED [None]
  - MUSCULAR WEAKNESS [None]
  - MUSCULOSKELETAL CHEST PAIN [None]
  - MUSCULOSKELETAL PAIN [None]
  - NAUSEA [None]
  - OEDEMA PERIPHERAL [None]
  - OESOPHAGITIS [None]
  - OSTEONECROSIS OF JAW [None]
  - OVARIAN CYST [None]
  - PAIN [None]
  - PELVIC NEOPLASM [None]
  - PUBIS FRACTURE [None]
  - RASH [None]
  - SALPINGO-OOPHORECTOMY BILATERAL [None]
  - SKIN LESION [None]
  - SPINAL CORPECTOMY [None]
  - SPINAL DISORDER [None]
  - SPINAL LAMINECTOMY [None]
  - SPINAL OSTEOARTHRITIS [None]
  - STAPHYLOCOCCAL SKIN INFECTION [None]
  - TREMOR [None]
  - VENOUS INSUFFICIENCY [None]
  - VISION BLURRED [None]
  - VOMITING [None]
  - WEIGHT DECREASED [None]
